FAERS Safety Report 5753843-6 (Version None)
Quarter: 2008Q2

REPORT INFORMATION
  Report Type: 
  Country: None (occurrence: None)
  Receive Date: 20080530
  Receipt Date: 20070626
  Transmission Date: 20081010
  Serious: No
  Sender: FDA-Public Use
  Company Number: A0656113A

PATIENT
  Age: 62 Year
  Sex: Female
  Weight: 63.5 kg

DRUGS (12)
  1. FLOLAN [Suspect]
     Indication: PULMONARY ARTERIAL HYPERTENSION
     Route: 042
     Dates: start: 20070525
  2. LASIX [Concomitant]
     Dosage: 40MG PER DAY
     Route: 048
  3. VICODIN [Concomitant]
     Dosage: 1TAB AS REQUIRED
     Route: 048
  4. IMDUR [Concomitant]
     Dosage: 30MG PER DAY
     Route: 048
  5. VALIUM [Concomitant]
     Dosage: 5MG AS REQUIRED
     Route: 048
  6. ADVAIR DISKUS 100/50 [Concomitant]
     Dosage: 1PUFF TWICE PER DAY
     Route: 055
  7. SPIRIVA [Concomitant]
     Dosage: 18MCG PER DAY
     Route: 055
  8. ASPIRIN [Concomitant]
     Dosage: 81MG PER DAY
     Route: 048
  9. DUONEB [Concomitant]
     Dosage: 1UNIT FOUR TIMES PER DAY
  10. NITROGLYCERINE SL [Concomitant]
     Dosage: .3MG AS REQUIRED
     Route: 048
  11. TYLENOL [Concomitant]
     Route: 048
  12. VITAMIN E [Concomitant]
     Route: 048

REACTIONS (2)
  - BONE PAIN [None]
  - PAIN IN JAW [None]
